FAERS Safety Report 9201122 (Version 1)
Quarter: 2013Q2

REPORT INFORMATION
  Report Type: Spontaneous
  Country: US (occurrence: US)
  Receive Date: 20130401
  Receipt Date: 20130401
  Transmission Date: 20140414
  Serious: No
  Sender: FDA-Public Use
  Company Number: US-PFIZER INC-2013103222

PATIENT
  Age: 70 Year
  Sex: Male
  Weight: 95.69 kg

DRUGS (8)
  1. NEURONTIN [Suspect]
     Indication: OPHTHALMIC HERPES ZOSTER
     Dosage: 300 MG, 3X/DAY
     Dates: start: 2008
  2. TRAMADOL HCL [Suspect]
     Indication: BACK INJURY
     Dosage: 50 MG, 2X/DAY
     Dates: start: 2009
  3. TRAMADOL HCL [Suspect]
     Indication: NECK INJURY
  4. TRAMADOL HCL [Suspect]
     Indication: EYE PAIN
  5. LYRICA [Suspect]
     Indication: PAIN
     Dosage: 50 MG, 2X/DAY
     Dates: start: 20130321
  6. HYDROCODONE [Suspect]
     Indication: BACK INJURY
     Dosage: 10/325 MG BY SPLITTING THE TABLETS INTO HALF
  7. HYDROCODONE [Suspect]
     Indication: NECK INJURY
  8. TOPROL XL [Concomitant]
     Indication: HYPERTENSION
     Dosage: 50 MG, 2X/DAY

REACTIONS (3)
  - Drug ineffective [Unknown]
  - Dizziness [Unknown]
  - Local swelling [Unknown]
